FAERS Safety Report 6545109-1 (Version None)
Quarter: 2010Q1

REPORT INFORMATION
  Report Type: 
  Country: None (occurrence: None)
  Receive Date: 20100115
  Receipt Date: 20100105
  Transmission Date: 20100710
  Serious: Yes (Other)
  Sender: FDA-Public Use
  Company Number: 233874J09USA

PATIENT
  Age: 53 Year
  Sex: Female

DRUGS (1)
  1. REBIF [Suspect]
     Indication: MULTIPLE SCLEROSIS
     Dosage: 44 MCG, 3 IN 1 WEEKS, SUBCUTANEOUS
     Route: 058
     Dates: start: 20090302

REACTIONS (9)
  - ABDOMINAL PAIN [None]
  - ADNEXA UTERI PAIN [None]
  - CONSTIPATION [None]
  - HAEMORRHAGE [None]
  - HAEMORRHOIDS [None]
  - LOSS OF CONSCIOUSNESS [None]
  - OVARIAN CYST [None]
  - POLLAKIURIA [None]
  - RECTAL HAEMORRHAGE [None]
